FAERS Safety Report 8544272-0 (Version None)
Quarter: 2012Q3

REPORT INFORMATION
  Report Type: 
  Country: None (occurrence: None)
  Receive Date: 20120727
  Receipt Date: 20120618
  Transmission Date: 20120928
  Serious: Yes (Other)
  Sender: FDA-Public Use
  Company Number: JP-009507513-1207JPN007850

PATIENT

DRUGS (1)
  1. FINASTERIDE [Suspect]
     Route: 048

REACTIONS (1)
  - HYPOACUSIS [None]
